FAERS Safety Report 4929797-9 (Version None)
Quarter: 2006Q1

REPORT INFORMATION
  Report Type: 
  Country: None (occurrence: None)
  Receive Date: 20060224
  Receipt Date: 20060215
  Transmission Date: 20060701
  Serious: Yes (Other)
  Sender: FDA-Public Use
  Company Number: HQWYE229901SEP05

PATIENT
  Age: 60 Year
  Sex: Female
  Weight: 68.1 kg

DRUGS (3)
  1. PREMARIN [Suspect]
     Indication: HORMONE REPLACEMENT THERAPY
  2. ESTRACE [Suspect]
  3. ESTRADIOL [Suspect]

REACTIONS (1)
  - NON-HODGKIN'S LYMPHOMA [None]
